FAERS Safety Report 22100706 (Version 2)
Quarter: 2023Q2

REPORT INFORMATION
  Report Type: Spontaneous
  Country: IN (occurrence: IN)
  Receive Date: 20230316
  Receipt Date: 20230506
  Transmission Date: 20230722
  Serious: Yes (Other)
  Sender: FDA-Public Use
  Company Number: IN-MACLEODS PHARMA EU LTD-MAC2023040244

PATIENT

DRUGS (3)
  1. TENOFOVIR DISOPROXIL [Suspect]
     Active Substance: TENOFOVIR DISOPROXIL
     Indication: Antiretroviral therapy
     Dosage: 300 MILLIGRAM
     Route: 065
  2. LAMIVUDINE [Concomitant]
     Active Substance: LAMIVUDINE
     Indication: Antiretroviral therapy
     Dosage: 300 MILLIGRAM
     Route: 065
  3. EFAVIRENZ [Concomitant]
     Active Substance: EFAVIRENZ
     Indication: Antiretroviral therapy
     Dosage: 600 MILLIGRAM
     Route: 065

REACTIONS (8)
  - Renal tubular acidosis [Recovering/Resolving]
  - Femur fracture [Recovering/Resolving]
  - Osteoporosis [Recovering/Resolving]
  - Osteopenia [Recovering/Resolving]
  - Femoral neck fracture [Recovering/Resolving]
  - Stress fracture [Recovering/Resolving]
  - Hypophosphataemic osteomalacia [Recovering/Resolving]
  - Hypokalaemia [Recovering/Resolving]
